FAERS Safety Report 8059459-3 (Version None)
Quarter: 2012Q1

REPORT INFORMATION
  Report Type: 
  Country: None (occurrence: None)
  Receive Date: 20120120
  Receipt Date: 20120119
  Transmission Date: 20120608
  Serious: No
  Sender: FDA-Public Use
  Company Number: US-B.I. PHARMACEUTICALS,INC./RIDGEFIELD-2012-BP-00969BP

PATIENT
  Sex: Male

DRUGS (12)
  1. PRADAXA [Suspect]
     Indication: OEDEMA PERIPHERAL
     Dosage: 300 MG
     Route: 048
     Dates: start: 20120109
  2. METOPROLOL TARTRATE [Concomitant]
     Indication: HYPERTENSION
  3. MULTI-VITAMINS [Concomitant]
     Indication: SUPPLEMENTATION THERAPY
     Route: 048
  4. TRICOR [Concomitant]
     Indication: BLOOD CHOLESTEROL INCREASED
  5. ZINC [Concomitant]
     Indication: SUPPLEMENTATION THERAPY
     Route: 048
  6. TRICOR [Concomitant]
     Indication: CHEST PAIN
     Route: 048
  7. RAMIPRIL [Concomitant]
     Indication: HYPERTENSION
  8. HYDROCHLOROTHIAZIDE [Concomitant]
     Indication: HYPERTENSION
  9. SAW PALMETTO [Concomitant]
     Indication: SUPPLEMENTATION THERAPY
     Route: 048
  10. OMEPRAZOLE [Concomitant]
     Indication: GASTROOESOPHAGEAL REFLUX DISEASE
     Route: 048
  11. NIACIN [Concomitant]
     Indication: SUPPLEMENTATION THERAPY
     Route: 048
  12. NITROGLYCERIN [Concomitant]
     Indication: CHEST PAIN

REACTIONS (4)
  - FATIGUE [None]
  - OFF LABEL USE [None]
  - HAEMATURIA [None]
  - ASTHENIA [None]
